FAERS Safety Report 9705346 (Version 1)
Quarter: 2013Q4

REPORT INFORMATION
  Report Type: Spontaneous
  Country: US (occurrence: US)
  Receive Date: 20131122
  Receipt Date: 20131122
  Transmission Date: 20140711
  Serious: Yes (Other)
  Sender: FDA-Public Use
  Company Number: US-TEVA-446683USA

PATIENT
  Sex: Female

DRUGS (2)
  1. METOCLOPRAMIDE [Suspect]
  2. REGLAN [Suspect]

REACTIONS (6)
  - Dyskinesia [Unknown]
  - Dyskinesia [Unknown]
  - Hypoaesthesia [Unknown]
  - Eyelid function disorder [Unknown]
  - Muscle spasms [Unknown]
  - Masked facies [Unknown]
